FAERS Safety Report 4477615-8 (Version None)
Quarter: 2004Q4

REPORT INFORMATION
  Report Type: 
  Country: None (occurrence: None)
  Receive Date: 20041014
  Receipt Date: 20041005
  Transmission Date: 20050328
  Serious: No
  Sender: FDA-Public Use
  Company Number: 209483

PATIENT
  Age: 67 Year
  Sex: Male
  Weight: 78.5 kg

DRUGS (4)
  1. XOLAIR [Suspect]
     Indication: ASTHMA
     Dosage: 150 MG, 1/ MONTH
     Dates: start: 20040607
  2. ADVAIR (FLUTICASONE PROPIOANTE, SALMETEROL XINAFOATE) [Concomitant]
  3. SINGULAIR [Concomitant]
  4. FLONASE [Concomitant]

REACTIONS (5)
  - AORTIC DILATATION [None]
  - FAT EMBOLISM [None]
  - HYPERTENSIVE HEART DISEASE [None]
  - RETINAL ARTERY EMBOLISM [None]
  - VISUAL FIELD DEFECT [None]
